FAERS Safety Report 8805142 (Version 1)
Quarter: 2012Q4

REPORT INFORMATION
  Report Type: 
  Country: US (occurrence: US)
  Receive Date: 20120924
  Receipt Date: 20120924
  Transmission Date: 20130627
  Serious: No
  Sender: FDA-Public Use
  Company Number: US-ALLERGAN-1208863US

PATIENT
  Sex: Female

DRUGS (11)
  1. LUMIGAN� 0.01% [Suspect]
     Indication: DRUG USE FOR UNKNOWN INDICATION
     Dosage: 2 Gtt, qhs
     Dates: start: 20120515, end: 20120618
  2. PLAVIX                             /01220701/ [Concomitant]
     Indication: DRUG USE FOR UNKNOWN INDICATION
  3. PREMARIN                           /00073001/ [Concomitant]
     Indication: DRUG USE FOR UNKNOWN INDICATION
  4. ASA [Concomitant]
     Indication: DRUG USE FOR UNKNOWN INDICATION
  5. VITAMINS [Concomitant]
     Indication: DRUG USE FOR UNKNOWN INDICATION
  6. GRAPE SEED                         /01364603/ [Concomitant]
     Indication: DRUG USE FOR UNKNOWN INDICATION
  7. NIACIN [Concomitant]
     Indication: DRUG USE FOR UNKNOWN INDICATION
  8. FOLIC ACID [Concomitant]
     Indication: DRUG USE FOR UNKNOWN INDICATION
  9. POTASSIUM [Concomitant]
     Indication: DRUG USE FOR UNKNOWN INDICATION
  10. FLAX OIL [Concomitant]
     Indication: DRUG USE FOR UNKNOWN INDICATION
  11. LYSINE [Concomitant]
     Indication: DRUG USE FOR UNKNOWN INDICATION

REACTIONS (1)
  - Palpitations [Recovered/Resolved]
